FAERS Safety Report 18578597 (Version 1)
Quarter: 2020Q4

REPORT INFORMATION
  Report Type: Spontaneous
  Country: PL (occurrence: PL)
  Receive Date: 20201204
  Receipt Date: 20201204
  Transmission Date: 20210114
  Serious: Yes (Death)
  Sender: FDA-Public Use
  Company Number: PL-JNJFOC-20201204708

PATIENT
  Age: 64 Year
  Sex: Female

DRUGS (8)
  1. BUPRENORPHINE. [Suspect]
     Active Substance: BUPRENORPHINE
     Indication: PAIN
     Route: 065
  2. MORPHINE [Suspect]
     Active Substance: MORPHINE
     Indication: PAIN
     Route: 065
  3. PARACETAMOL [Suspect]
     Active Substance: ACETAMINOPHEN
     Indication: PAIN
     Route: 065
  4. HEPARIN [Suspect]
     Active Substance: HEPARIN SODIUM
     Indication: PRODUCT USED FOR UNKNOWN INDICATION
     Route: 065
  5. CINACALCET. [Suspect]
     Active Substance: CINACALCET
     Indication: HYPERPARATHYROIDISM
     Route: 065
  6. CIPROFLOXACIN. [Suspect]
     Active Substance: CIPROFLOXACIN
     Indication: PRODUCT USED FOR UNKNOWN INDICATION
     Route: 065
  7. VANCOMYCIN [Suspect]
     Active Substance: VANCOMYCIN
     Indication: PRODUCT USED FOR UNKNOWN INDICATION
     Route: 065
  8. CEFTRIAXONE SODIUM. [Suspect]
     Active Substance: CEFTRIAXONE SODIUM
     Indication: PRODUCT USED FOR UNKNOWN INDICATION
     Route: 065

REACTIONS (2)
  - Multiple organ dysfunction syndrome [Fatal]
  - Drug ineffective [Fatal]
